FAERS Safety Report 7315014-1 (Version None)
Quarter: 2011Q1

REPORT INFORMATION
  Report Type: 
  Country: None (occurrence: None)
  Receive Date: 20110225
  Receipt Date: 20100329
  Transmission Date: 20110831
  Serious: No
  Sender: FDA-Public Use
  Company Number: US-MYLANLABS-2010S1003890

PATIENT
  Age: 34 Year
  Sex: Male
  Weight: 113.4 kg

DRUGS (2)
  1. AMNESTEEM [Suspect]
     Indication: ACNE
     Dates: start: 20100222, end: 20100308
  2. AMNESTEEM [Suspect]
     Dates: start: 20100222, end: 20100308

REACTIONS (3)
  - ABDOMINAL PAIN UPPER [None]
  - MYALGIA [None]
  - ASTHENIA [None]
